FAERS Safety Report 14130173 (Version 5)
Quarter: 2019Q2

REPORT INFORMATION
  Report Type: Report from Study
  Country: US (occurrence: US)
  Receive Date: 20171026
  Receipt Date: 20190502
  Transmission Date: 20190711
  Serious: Yes (Death, Hospitalization, Other)
  Sender: FDA-Public Use
  Company Number: US-ARIAD PHARMACEUTICALS, INC-2017US008608

PATIENT
  Age: 61 Year
  Sex: Female

DRUGS (3)
  1. PONATINIB [Suspect]
     Active Substance: PONATINIB
     Dosage: 30 MILLIGRAM, QD
     Route: 048
  2. PONATINIB [Suspect]
     Active Substance: PONATINIB
     Dosage: 30 MILLIGRAM, QD
     Route: 048
  3. PONATINIB [Suspect]
     Active Substance: PONATINIB
     Indication: CHRONIC MYELOID LEUKAEMIA
     Dosage: 15 MILLIGRAM, QD
     Route: 048
     Dates: start: 20140202

REACTIONS (15)
  - White blood cell count increased [Unknown]
  - Death [Fatal]
  - Dermatitis exfoliative generalised [Unknown]
  - Stem cell transplant [Unknown]
  - Acne [Unknown]
  - Ulcer haemorrhage [Unknown]
  - Weight increased [Unknown]
  - Platelet count increased [Unknown]
  - Alopecia [Unknown]
  - Rash [Recovering/Resolving]
  - Haemoglobin abnormal [Not Recovered/Not Resolved]
  - Angiopathy [Unknown]
  - Glaucoma [Unknown]
  - Obesity [Unknown]
  - Hypertension [Unknown]

NARRATIVE: CASE EVENT DATE: 20190423
